FAERS Safety Report 9108409 (Version 1)
Quarter: 2013Q1

REPORT INFORMATION
  Report Type: Spontaneous
  Country: US (occurrence: US)
  Receive Date: 20130222
  Receipt Date: 20130222
  Transmission Date: 20140127
  Serious: Yes (Hospitalization)
  Sender: FDA-Public Use
  Company Number: PHEH2013US004425

PATIENT
  Age: 27 Year
  Sex: Male

DRUGS (1)
  1. GILENYA [Suspect]
     Dosage: 0.5 MG, QD
     Route: 048

REACTIONS (4)
  - Autoimmune disorder [Unknown]
  - Atrial fibrillation [Unknown]
  - Pneumonia [Unknown]
  - Hepatic enzyme increased [Unknown]
